FAERS Safety Report 13472552 (Version 1)
Quarter: 2017Q2

REPORT INFORMATION
  Report Type: Spontaneous
  Country: US (occurrence: US)
  Receive Date: 20170424
  Receipt Date: 20170424
  Transmission Date: 20170830
  Serious: Yes (Other)
  Sender: FDA-Public Use
  Company Number: None

PATIENT
  Age: 8 Year
  Sex: Female
  Weight: 26.33 kg

DRUGS (5)
  1. STRATTERA [Suspect]
     Active Substance: ATOMOXETINE HYDROCHLORIDE
     Indication: POST-TRAUMATIC STRESS DISORDER
     Dosage: STRATTERA 25MG Q AM PO
     Route: 048
     Dates: start: 20170323
  2. VYVANSE [Suspect]
     Active Substance: LISDEXAMFETAMINE DIMESYLATE
     Indication: EATING DISORDER
     Dosage: VYVANSE 20 MG Q AM PO
     Route: 048
     Dates: start: 20160103, end: 20170301
  3. TYLENOL [Concomitant]
     Active Substance: ACETAMINOPHEN
  4. STRATTERA [Suspect]
     Active Substance: ATOMOXETINE HYDROCHLORIDE
     Indication: DISSOCIATIVE DISORDER
     Dosage: STRATTERA 25MG Q AM PO
     Route: 048
     Dates: start: 20170323
  5. MOTRIN [Concomitant]
     Active Substance: IBUPROFEN

REACTIONS (2)
  - Decreased appetite [None]
  - Headache [None]

NARRATIVE: CASE EVENT DATE: 20170228
